FAERS Safety Report 6265295-0 (Version None)
Quarter: 2009Q3

REPORT INFORMATION
  Report Type: 
  Country: None (occurrence: None)
  Receive Date: 20090713
  Receipt Date: 20090708
  Transmission Date: 20100115
  Serious: No
  Sender: FDA-Public Use
  Company Number: US-B.I. PHARMACEUTICALS,INC./RIDGEFIELD-2009-BP-06998BP

PATIENT
  Age: 57 Year
  Sex: Female

DRUGS (3)
  1. CATAPRES-TTS-1 [Suspect]
     Indication: HYPERTENSION
     Dosage: 0.2 MG
     Route: 061
     Dates: start: 20090331, end: 20090611
  2. CITALOPRAM HYDROBROMIDE [Concomitant]
     Dosage: 20 MG
     Dates: start: 20090101
  3. ROBITUSSIN [Concomitant]

REACTIONS (6)
  - APPLICATION SITE INFLAMMATION [None]
  - APPLICATION SITE PRURITUS [None]
  - APPLICATION SITE SWELLING [None]
  - EXFOLIATIVE RASH [None]
  - RASH ERYTHEMATOUS [None]
  - RASH PRURITIC [None]
